FAERS Safety Report 9764495 (Version 2)
Quarter: 2014Q1

REPORT INFORMATION
  Report Type: Spontaneous
  Country: US (occurrence: US)
  Receive Date: 20131217
  Receipt Date: 20140219
  Transmission Date: 20141002
  Serious: Yes (Disabling, Other)
  Sender: FDA-Public Use
  Company Number: US-THROMBOGENICS INC.-JET-2013-346

PATIENT
  Age: 66 Year
  Sex: Female

DRUGS (1)
  1. JETREA [Suspect]
     Indication: VITREOUS ADHESIONS
     Dosage: 2.5 MG, ONE TIME DOSE
     Route: 031
     Dates: start: 20130212, end: 20130212

REACTIONS (14)
  - Non-infectious endophthalmitis [Not Recovered/Not Resolved]
  - Visual acuity reduced [Recovered/Resolved]
  - Anterior chamber inflammation [Recovering/Resolving]
  - Hypopyon [Recovering/Resolving]
  - Photophobia [Unknown]
  - Photopsia [Unknown]
  - Metamorphopsia [Unknown]
  - Eye pain [Unknown]
  - Ocular hyperaemia [Unknown]
  - Vitreous floaters [Unknown]
  - Vision blurred [Unknown]
  - Headache [Unknown]
  - Visual acuity reduced [Not Recovered/Not Resolved]
  - Visual impairment [Unknown]
